FAERS Safety Report 25940414 (Version 1)
Quarter: 2025Q4

REPORT INFORMATION
  Report Type: Report from Study
  Country: CA (occurrence: CA)
  Receive Date: 20251020
  Receipt Date: 20251020
  Transmission Date: 20260117
  Serious: Yes (Other)
  Sender: PFIZER
  Company Number: CA-PFIZER INC-202500203990

PATIENT
  Age: 68 Year
  Sex: Male

DRUGS (4)
  1. METHOTREXATE SODIUM [Suspect]
     Active Substance: METHOTREXATE SODIUM
     Route: 037
  2. PLAQUENIL [Suspect]
     Active Substance: HYDROXYCHLOROQUINE SULFATE
     Route: 065
  3. ETANERCEPT [Suspect]
     Active Substance: ETANERCEPT
     Indication: Rheumatoid arthritis
     Dosage: 50 MG, WEEKLY; 1 EVERY 1 WEEKS
     Route: 058
  4. ETANERCEPT [Suspect]
     Active Substance: ETANERCEPT
     Indication: Rheumatoid arthritis
     Dosage: 50 MG, WEEKLY; 1 EVERY 1 WEEKS

REACTIONS (6)
  - Coating in mouth [Recovered/Resolved]
  - Dysphagia [Recovered/Resolved]
  - Hepatitis B [Recovered/Resolved]
  - Illness [Recovered/Resolved]
  - Peritonsillar abscess [Recovered/Resolved]
  - Stomatitis [Recovered/Resolved]
